FAERS Safety Report 23615396 (Version 1)
Quarter: 2024Q1

REPORT INFORMATION
  Report Type: Spontaneous
  Country: PT (occurrence: PT)
  Receive Date: 20240311
  Receipt Date: 20240311
  Transmission Date: 20240409
  Serious: Yes (Hospitalization)
  Sender: FDA-Public Use
  Company Number: PT-FreseniusKabi-FK202402962

PATIENT
  Age: 43 Year
  Sex: Male

DRUGS (12)
  1. CLOZAPINE [Suspect]
     Active Substance: CLOZAPINE
     Indication: Obsessive-compulsive symptom
     Dosage: 300 MILLIGRAM
     Route: 065
  2. CLOZAPINE [Suspect]
     Active Substance: CLOZAPINE
     Indication: Schizophrenia
  3. BIPERIDEN [Concomitant]
     Active Substance: BIPERIDEN
     Indication: Obsessive-compulsive symptom
     Dosage: 4 MILLIGRAM (TAKEN ONCE IN THE PREVIOUS MONTH)
     Route: 065
  4. BIPERIDEN [Concomitant]
     Active Substance: BIPERIDEN
     Indication: Schizophrenia
  5. FLUVOXAMINE [Concomitant]
     Active Substance: FLUVOXAMINE
     Indication: Obsessive-compulsive symptom
     Dosage: 300 MILLIGRAM (TAKEN ONCE IN THE PREVIOUS MONTH)
     Route: 065
  6. FLUVOXAMINE [Concomitant]
     Active Substance: FLUVOXAMINE
     Indication: Schizophrenia
  7. PALIPERIDONE PALMITATE [Concomitant]
     Active Substance: PALIPERIDONE PALMITATE
     Indication: Obsessive-compulsive symptom
     Dosage: 150 MILLIGRAM (MONTHLY)
     Route: 065
  8. PALIPERIDONE PALMITATE [Concomitant]
     Active Substance: PALIPERIDONE PALMITATE
     Indication: Schizophrenia
  9. HALOPERIDOL DECANOATE [Concomitant]
     Active Substance: HALOPERIDOL DECANOATE
     Indication: Schizophrenia
     Dosage: 50 MILLIGRAM (TAKEN ONCE IN THE PREVIOUS MONTH)
     Route: 065
  10. HALOPERIDOL DECANOATE [Concomitant]
     Active Substance: HALOPERIDOL DECANOATE
     Indication: Obsessive-compulsive symptom
  11. OLANZAPINE [Concomitant]
     Active Substance: OLANZAPINE
     Indication: Schizophrenia
     Dosage: 10 MILLIGRAM (TAKEN ONCE IN THE PREVIOUS MONTH)
     Route: 065
  12. OLANZAPINE [Concomitant]
     Active Substance: OLANZAPINE
     Indication: Obsessive-compulsive symptom

REACTIONS (2)
  - Salivary hypersecretion [Recovering/Resolving]
  - Antipsychotic drug level above therapeutic [Recovering/Resolving]
